FAERS Safety Report 16669517 (Version 2)
Quarter: 2019Q3

REPORT INFORMATION
  Report Type: Spontaneous
  Country: FR (occurrence: FR)
  Receive Date: 20190805
  Receipt Date: 20190822
  Transmission Date: 20191004
  Serious: Yes (Other)
  Sender: FDA-Public Use
  Company Number: FR-MYLANLABS-2017M1024468

PATIENT
  Age: 57 Year
  Sex: Male

DRUGS (15)
  1. RIBAVIRIN. [Suspect]
     Active Substance: RIBAVIRIN
     Indication: HEPATITIS E
     Dosage: 800 MG, QD
     Dates: start: 200903, end: 200909
  2. PEGYLATED INTERFERON ALFA-2A [Suspect]
     Active Substance: PEGINTERFERON ALFA-2A
     Dosage: 120 MICROGRAM
     Dates: start: 201002, end: 201004
  3. EVEROLIMUS. [Concomitant]
     Active Substance: EVEROLIMUS
     Indication: LIVER TRANSPLANT
     Dosage: UNK
  4. EVEROLIMUS. [Concomitant]
     Active Substance: EVEROLIMUS
     Dosage: 1.5 MG, TWICE DAILY
     Route: 065
  5. EVEROLIMUS. [Concomitant]
     Active Substance: EVEROLIMUS
     Indication: IMMUNOSUPPRESSANT DRUG THERAPY
     Dosage: 1.5 MG, BID
     Dates: start: 2004
  6. EVEROLIMUS. [Concomitant]
     Active Substance: EVEROLIMUS
     Indication: PROPHYLAXIS AGAINST TRANSPLANT REJECTION
     Dosage: 1.5 MG, BID
  7. RIBAVIRIN. [Suspect]
     Active Substance: RIBAVIRIN
     Dosage: 400 MG, QD
     Dates: start: 201002, end: 201004
  8. RIBAVIRIN. [Suspect]
     Active Substance: RIBAVIRIN
     Dosage: 800 MG, QD
  9. PEGYLATED INTERFERON ALFA-2A [Suspect]
     Active Substance: PEGINTERFERON ALFA-2A
     Indication: HEPATITIS E
     Dosage: 120 MCG, QW
     Dates: start: 2010, end: 2010
  10. PEGINTERFERON ALFA-2B [Concomitant]
     Active Substance: PEGINTERFERON ALFA-2B
     Dosage: 90 MICROGRAM, QW (PER WEEK)
     Dates: start: 200903, end: 200909
  11. MYCOPHENOLATE MOFETIL. [Suspect]
     Active Substance: MYCOPHENOLATE MOFETIL
     Indication: PROPHYLAXIS AGAINST TRANSPLANT REJECTION
     Dosage: UNK
  12. TACROLIMUS. [Suspect]
     Active Substance: TACROLIMUS
     Indication: PROPHYLAXIS AGAINST TRANSPLANT REJECTION
     Dosage: UNK
  13. PEGINTERFERON ALFA-2B [Concomitant]
     Active Substance: PEGINTERFERON ALFA-2B
     Indication: HEPATITIS E
     Dosage: 90 MCG, QW
     Dates: start: 2009
  14. RIBAVIRIN. [Suspect]
     Active Substance: RIBAVIRIN
     Dosage: UNK
     Route: 065
     Dates: start: 200903, end: 200909
  15. RIBAVIRIN. [Suspect]
     Active Substance: RIBAVIRIN
     Dosage: UNK
     Route: 065
     Dates: start: 201002, end: 201004

REACTIONS (11)
  - Condition aggravated [Unknown]
  - Diabetes mellitus [Unknown]
  - Hypertension [Unknown]
  - Drug ineffective for unapproved indication [Unknown]
  - Headache [Unknown]
  - Overweight [Unknown]
  - Hepatitis E [Unknown]
  - Squamous cell carcinoma of the tongue [Unknown]
  - Fatigue [Unknown]
  - Thrombocytopenia [Unknown]
  - Off label use [Unknown]

NARRATIVE: CASE EVENT DATE: 2006
